FAERS Safety Report 7801880-X (Version None)
Quarter: 2011Q4

REPORT INFORMATION
  Report Type: 
  Country: None (occurrence: None)
  Receive Date: 20111007
  Receipt Date: 20110923
  Transmission Date: 20120403
  Serious: Yes (Hospitalization)
  Sender: FDA-Public Use
  Company Number: FR-PFIZER INC-2005070438

PATIENT
  Age: 30 Year
  Sex: Male

DRUGS (10)
  1. TRANSACALM [Suspect]
     Indication: GASTROINTESTINAL INFLAMMATION
     Route: 048
     Dates: start: 20050326, end: 20050401
  2. FLUTICASONE PROPIONATE [Concomitant]
     Indication: NASAL POLYPS
     Route: 045
  3. BACTRIM DS [Suspect]
     Indication: GASTROINTESTINAL INFLAMMATION
     Route: 048
     Dates: start: 20050326, end: 20050401
  4. NIFUROXAZIDE [Concomitant]
     Indication: GASTROINTESTINAL INFLAMMATION
     Route: 048
     Dates: start: 20050325, end: 20050326
  5. BACTRIM DS [Suspect]
     Indication: COLITIS
  6. YEAST DRIED [Concomitant]
     Indication: GASTROINTESTINAL INFLAMMATION
     Route: 048
     Dates: start: 20050326
  7. CARBOLEVURE [Concomitant]
     Indication: GASTROINTESTINAL INFLAMMATION
     Route: 048
     Dates: start: 20050325, end: 20050326
  8. TRANSACALM [Suspect]
     Indication: COLITIS
  9. PANTOPRAZOLE SODIUM [Suspect]
     Dosage: 20 MG, 1X/DAY
     Route: 048
     Dates: start: 20050326, end: 20050401
  10. ACETAMINOPHEN [Concomitant]
     Indication: GASTROINTESTINAL INFLAMMATION
     Route: 048
     Dates: start: 20050325

REACTIONS (3)
  - RASH MACULO-PAPULAR [None]
  - PRURITUS [None]
  - PURPURA [None]
